FAERS Safety Report 13527283 (Version 2)
Quarter: 2020Q2

REPORT INFORMATION
  Report Type: Spontaneous
  Country: IT (occurrence: IT)
  Receive Date: 20170509
  Receipt Date: 20200630
  Transmission Date: 20200713
  Serious: Yes (Other)
  Sender: FDA-Public Use
  Company Number: IT-AMGEN-ITASP2017069492

PATIENT
  Age: 29 Year
  Sex: Female

DRUGS (15)
  1. LEDIPASVIR [Concomitant]
     Active Substance: LEDIPASVIR
     Indication: HEPATITIS C
  2. IMMUNOGLOBULIN [Concomitant]
     Indication: IMMUNE THROMBOCYTOPENIA
     Dosage: UNK
     Route: 042
     Dates: start: 201611
  3. NPLATE [Suspect]
     Active Substance: ROMIPLOSTIM
     Indication: IMMUNE THROMBOCYTOPENIA
     Dosage: 1 MICROGRAM/KILOGRAM, QWK
     Route: 065
     Dates: start: 201311
  4. RITUXIMAB. [Concomitant]
     Active Substance: RITUXIMAB
     Indication: IMMUNE THROMBOCYTOPENIA
     Dosage: 375 MILLIGRAM/SQ. METER
     Dates: start: 201404
  5. PREDNISONE. [Concomitant]
     Active Substance: PREDNISONE
     Indication: IMMUNE THROMBOCYTOPENIA
     Dosage: UNK
     Route: 065
     Dates: start: 2006
  6. PREDNISONE. [Concomitant]
     Active Substance: PREDNISONE
     Dosage: UNK
     Route: 065
     Dates: start: 201703
  7. ELTROMBOPAG [Concomitant]
     Active Substance: ELTROMBOPAG
     Dosage: UNK
     Dates: start: 201703
  8. ELTROMBOPAG [Concomitant]
     Active Substance: ELTROMBOPAG
     Dosage: 50 MILLIGRAM, QD
  9. SOFOSBUVIR [Concomitant]
     Active Substance: SOFOSBUVIR
     Indication: HEPATITIS C
  10. PREDNISONE. [Concomitant]
     Active Substance: PREDNISONE
     Dosage: 68 MILLIGRAM, Q3WK
     Route: 065
  11. ELTROMBOPAG [Concomitant]
     Active Substance: ELTROMBOPAG
     Indication: IMMUNE THROMBOCYTOPENIA
     Dosage: UNK
     Dates: start: 2016
  12. NPLATE [Suspect]
     Active Substance: ROMIPLOSTIM
     Dosage: 3.5 MICROGRAM/KILOGRAM, QWK
     Route: 065
  13. CYCLOSPORINE. [Concomitant]
     Active Substance: CYCLOSPORINE
     Dosage: 50 MG X 2 UP TO 100 MG X 2 DAILY
     Route: 065
  14. NPLATE [Suspect]
     Active Substance: ROMIPLOSTIM
     Dosage: 10 MICROGRAM/KILOGRAM, QWK
     Route: 065
  15. PREDNISONE. [Concomitant]
     Active Substance: PREDNISONE
     Dosage: UNK
     Route: 065
     Dates: start: 201611

REACTIONS (13)
  - Maternal exposure during pregnancy [Unknown]
  - Epistaxis [Unknown]
  - Treatment failure [Unknown]
  - Uterine haematoma [Unknown]
  - Petechiae [Unknown]
  - Caesarean section [Unknown]
  - Haemolytic anaemia [Unknown]
  - Gingival bleeding [Unknown]
  - Premature delivery [Unknown]
  - Cytomegalovirus urinary tract infection [Unknown]
  - Escherichia urinary tract infection [Unknown]
  - Immune thrombocytopenia [Recovered/Resolved]
  - Therapeutic product effect decreased [Unknown]
